FAERS Safety Report 5740639-4 (Version None)
Quarter: 2008Q2

REPORT INFORMATION
  Report Type: 
  Country: None (occurrence: None)
  Receive Date: 20080516
  Receipt Date: 20080513
  Transmission Date: 20081010
  Serious: Yes (Hospitalization)
  Sender: FDA-Public Use
  Company Number: B0519914A

PATIENT
  Age: 77 Year
  Sex: Male

DRUGS (8)
  1. AUGMENTIN '125' [Suspect]
     Indication: INFECTION
     Route: 048
  2. GLURENORM [Concomitant]
  3. METFORMAX [Concomitant]
  4. IRBESARTAN [Concomitant]
  5. SPIRIVA [Concomitant]
  6. DUOVENT [Concomitant]
  7. MEDROL [Concomitant]
  8. LASIX [Concomitant]

REACTIONS (2)
  - NEPHRITIS INTERSTITIAL [None]
  - RENAL FAILURE ACUTE [None]
